FAERS Safety Report 7641121-X (Version None)
Quarter: 2011Q3

REPORT INFORMATION
  Report Type: 
  Country: None (occurrence: None)
  Receive Date: 20110728
  Receipt Date: 20110718
  Transmission Date: 20111222
  Serious: Yes (Hospitalization)
  Sender: FDA-Public Use
  Company Number: FR-JNJFOC-20110710275

PATIENT
  Sex: Female

DRUGS (7)
  1. IMOVANE [Suspect]
     Indication: FEAR
     Route: 048
     Dates: start: 20101028, end: 20101213
  2. PREDNISOLONE [Concomitant]
  3. KETOPROFEN [Suspect]
     Indication: PAIN
     Dates: start: 20101028, end: 20101213
  4. IPILIMUMAB [Suspect]
     Indication: MALIGNANT MELANOMA
  5. TRAMADOL HCL [Suspect]
     Indication: PAIN
     Route: 065
     Dates: start: 20101213, end: 20101229
  6. ACETAMINOPHEN [Suspect]
     Indication: PAIN
     Dates: start: 20101213
  7. ACETAMINOPHEN [Suspect]

REACTIONS (1)
  - CYTOLYTIC HEPATITIS [None]
